FAERS Safety Report 11776567 (Version 1)
Quarter: 2015Q4

REPORT INFORMATION
  Report Type: Report from Study
  Country: JP (occurrence: JP)
  Receive Date: 20151125
  Receipt Date: 20151125
  Transmission Date: 20160304
  Serious: Yes (Death, Other)
  Sender: FDA-Public Use
  Company Number: PHJP2015JP020895

PATIENT
  Age: 65 Year

DRUGS (1)
  1. NEORAL [Suspect]
     Active Substance: CYCLOSPORINE
     Indication: APLASTIC ANAEMIA
     Dosage: UNK
     Route: 048

REACTIONS (5)
  - Renal cell carcinoma [Unknown]
  - Product use issue [Unknown]
  - Sepsis [Fatal]
  - Renal impairment [Unknown]
  - Drug ineffective [Not Recovered/Not Resolved]
